FAERS Safety Report 21466331 (Version 2)
Quarter: 2022Q4

REPORT INFORMATION
  Report Type: Spontaneous
  Country: CN (occurrence: CN)
  Receive Date: 20221017
  Receipt Date: 20221223
  Transmission Date: 20230113
  Serious: Yes (Other)
  Sender: FDA-Public Use
  Company Number: CN-ANIPHARMA-2022-CN-000345

PATIENT
  Age: 18 Year
  Sex: Female
  Weight: 50 kg

DRUGS (2)
  1. FLUVOXAMINE [Suspect]
     Active Substance: FLUVOXAMINE
     Indication: Obsessive-compulsive disorder
     Dosage: 250 MG (250 MG, 1 IN 1 D)
     Route: 048
     Dates: start: 20211214, end: 20211229
  2. REMERON [Suspect]
     Active Substance: MIRTAZAPINE
     Dosage: 15 MG (15 MG, 1 IN 1 D)
     Route: 048
     Dates: start: 20211220, end: 20211229

REACTIONS (1)
  - Drug-induced liver injury [Not Recovered/Not Resolved]
